FAERS Safety Report 12383470 (Version 1)
Quarter: 2016Q2

REPORT INFORMATION
  Report Type: Spontaneous
  Country: FI (occurrence: FI)
  Receive Date: 20160518
  Receipt Date: 20160518
  Transmission Date: 20160815
  Serious: Yes (Hospitalization)
  Sender: FDA-Public Use
  Company Number: FI-GILEAD-2016-0211074

PATIENT
  Age: 75 Year
  Sex: Female
  Weight: 60 kg

DRUGS (13)
  1. ZYDELIG [Suspect]
     Active Substance: IDELALISIB
     Indication: CHRONIC LYMPHOCYTIC LEUKAEMIA
     Dosage: 150 MG, BID
     Route: 048
     Dates: start: 20160120, end: 20160311
  2. PROTAPHANE [Concomitant]
     Active Substance: INSULIN HUMAN
     Dosage: 7 IU, X1
     Route: 058
  3. BISOPROLOL [Concomitant]
     Active Substance: BISOPROLOL
     Dosage: 2.5 MG, X1
     Route: 048
  4. SOMAC [Concomitant]
     Active Substance: PANTOPRAZOLE SODIUM
     Dosage: 40 MG, UNK
     Route: 048
  5. PRIMASPAN [Concomitant]
     Active Substance: ASPIRIN
     Dosage: 100 MG, X1
  6. FOLIVER [Concomitant]
     Dosage: 1 MG, X1
  7. PREDNISOLON                        /00016201/ [Concomitant]
     Active Substance: PREDNISOLONE
     Dosage: 7.5 MG, X1
  8. KALEORID [Concomitant]
     Active Substance: POTASSIUM CHLORIDE
     Dosage: 1 G, X3
     Route: 048
  9. CALCICHEW D3 FORTE [Concomitant]
     Active Substance: CALCIUM\CHOLECALCIFEROL
     Dosage: 500 MG, UNK
     Route: 048
  10. FURESIS [Concomitant]
     Active Substance: FUROSEMIDE
     Dosage: 20 MG, X2
  11. VALAVIR                            /01269702/ [Concomitant]
     Dosage: 500 MG, X2
  12. THYROXIN [Concomitant]
     Active Substance: LEVOTHYROXINE
     Dosage: 0.1 MG, X1
     Route: 048
  13. MABTHERA [Concomitant]
     Active Substance: RITUXIMAB
     Dosage: 700 MG, (^2.3 LAST TIME^)
     Route: 042
     Dates: start: 20160120

REACTIONS (6)
  - Neutropenia [Recovered/Resolved with Sequelae]
  - Rash [Recovered/Resolved with Sequelae]
  - Anaemia [Not Recovered/Not Resolved]
  - C-reactive protein increased [Unknown]
  - Folliculitis [Recovered/Resolved with Sequelae]
  - Pyrexia [Unknown]

NARRATIVE: CASE EVENT DATE: 20160308
